FAERS Safety Report 8946851 (Version 1)
Quarter: 2012Q4

REPORT INFORMATION
  Report Type: 
  Country: US (occurrence: US)
  Receive Date: 20121205
  Receipt Date: 20121205
  Transmission Date: 20130627
  Serious: Yes (Hospitalization)
  Sender: FDA-Public Use
  Company Number: CHPA2012US024313

PATIENT
  Age: 76 Year
  Sex: Male

DRUGS (2)
  1. MAALOX ANTACID/ANTIGAS RS LIQ COOL MINT [Suspect]
     Indication: DYSPEPSIA
     Dosage: 1 tbsp at night, periodically
     Route: 048
  2. TUMS EXTRA STRENGTH [Concomitant]
     Indication: DYSPEPSIA

REACTIONS (3)
  - Myocardial infarction [Unknown]
  - Chest pain [Recovered/Resolved]
  - Sluggishness [Not Recovered/Not Resolved]
